FAERS Safety Report 7970116-1 (Version None)
Quarter: 2011Q4

REPORT INFORMATION
  Report Type: 
  Country: None (occurrence: None)
  Receive Date: 20111212
  Receipt Date: 20111207
  Transmission Date: 20120403
  Serious: Yes (Other)
  Sender: FDA-Public Use
  Company Number: US-AMGEN-USASP2011014115

PATIENT
  Age: 25 Year
  Sex: Female

DRUGS (1)
  1. NPLATE [Suspect]
     Indication: IDIOPATHIC THROMBOCYTOPENIC PURPURA
     Dosage: UNK
     Dates: start: 20101210

REACTIONS (8)
  - OEDEMA PERIPHERAL [None]
  - SWELLING FACE [None]
  - HEADACHE [None]
  - EMBOLISM [None]
  - CEREBROVASCULAR ACCIDENT [None]
  - THROMBOSIS [None]
  - LOCAL SWELLING [None]
  - PHARYNGEAL OEDEMA [None]
